FAERS Safety Report 10697286 (Version 1)
Quarter: 2015Q1

REPORT INFORMATION
  Report Type: Spontaneous
  Country: US (occurrence: None)
  Receive Date: 20150107
  Receipt Date: 20150107
  Transmission Date: 20150721
  Serious: No
  Sender: FDA-Public Use
  Company Number: None

PATIENT
  Age: 26 Year
  Sex: Female
  Weight: 72.58 kg

DRUGS (1)
  1. ENABLEX [Suspect]
     Active Substance: DARIFENACIN\DARIFENACIN HYDROBROMIDE
     Indication: HYPERTONIC BLADDER
     Dosage: 1 PILL ONCE DAILY TAKEN BY MOUTH
     Route: 048
     Dates: start: 20141127, end: 20141230

REACTIONS (4)
  - Dry mouth [None]
  - Hair texture abnormal [None]
  - Dry skin [None]
  - Lip dry [None]

NARRATIVE: CASE EVENT DATE: 20150106
